FAERS Safety Report 9119879 (Version 1)
Quarter: 2013Q1

REPORT INFORMATION
  Report Type: Spontaneous
  Country: US (occurrence: US)
  Receive Date: 20130226
  Receipt Date: 20130226
  Transmission Date: 20140127
  Serious: Yes (Other)
  Sender: FDA-Public Use
  Company Number: US-PFIZER INC-2013066869

PATIENT
  Age: 66 Year
  Sex: Female
  Weight: 65.4 kg

DRUGS (1)
  1. SUTENT [Suspect]
     Dosage: UNK
     Dates: start: 200902, end: 200906

REACTIONS (3)
  - Haemorrhage [Unknown]
  - Blood count abnormal [Unknown]
  - Oral pain [Unknown]
